FAERS Safety Report 24014848 (Version 1)
Quarter: 2024Q2

REPORT INFORMATION
  Report Type: Spontaneous
  Country: AU (occurrence: AU)
  Receive Date: 20240626
  Receipt Date: 20240626
  Transmission Date: 20240716
  Serious: Yes (Hospitalization, Other)
  Sender: FDA-Public Use
  Company Number: None

PATIENT
  Age: 76 Year
  Sex: Male

DRUGS (8)
  1. FLUOXETINE HYDROCHLORIDE [Suspect]
     Active Substance: FLUOXETINE HYDROCHLORIDE
     Indication: Neuropsychological symptoms
     Dosage: 20 MG
     Route: 065
  2. RIVASTIGMINE [Suspect]
     Active Substance: RIVASTIGMINE
     Indication: Neuropsychological symptoms
     Dosage: 9.5 MG
     Route: 065
  3. CARBAMAZEPINE [Suspect]
     Active Substance: CARBAMAZEPINE
     Indication: Neuropsychological symptoms
     Dosage: UNK
     Route: 065
  4. MEMANTINE HYDROCHLORIDE [Suspect]
     Active Substance: MEMANTINE HYDROCHLORIDE
     Indication: Neuropsychological symptoms
     Dosage: 15 MG
     Route: 065
  5. QUETIAPINE FUMARATE [Suspect]
     Active Substance: QUETIAPINE FUMARATE
     Indication: Neuropsychological symptoms
     Dosage: 400 MG, QD
     Route: 065
  6. HALOPERIDOL [Suspect]
     Active Substance: HALOPERIDOL
     Indication: Neuropsychological symptoms
     Dosage: 5 MG, QD
     Route: 065
  7. PRAZOSIN HYDROCHLORIDE [Suspect]
     Active Substance: PRAZOSIN HYDROCHLORIDE
     Indication: Neuropsychological symptoms
     Dosage: UNK
     Route: 065
  8. VALPROIC ACID [Suspect]
     Active Substance: VALPROIC ACID
     Indication: Neuropsychological symptoms
     Dosage: UNK
     Route: 065

REACTIONS (9)
  - Drug ineffective for unapproved indication [Unknown]
  - Mental impairment [Unknown]
  - Cognitive disorder [Unknown]
  - Psychotic disorder [Unknown]
  - Nightmare [Unknown]
  - Confusional state [Unknown]
  - Aggression [Unknown]
  - Agitation [Unknown]
  - Off label use [Unknown]
